FAERS Safety Report 13025366 (Version 2)
Quarter: 2017Q2

REPORT INFORMATION
  Report Type: Spontaneous
  Country: IT (occurrence: IT)
  Receive Date: 20161214
  Receipt Date: 20170512
  Transmission Date: 20170830
  Serious: Yes (Hospitalization, Other)
  Sender: FDA-Public Use
  Company Number: IT-AMGEN-ITASP2016173321

PATIENT

DRUGS (4)
  1. BENDAMUSTINE [Suspect]
     Active Substance: BENDAMUSTINE
     Indication: NON-HODGKIN^S LYMPHOMA UNSPECIFIED HISTOLOGY INDOLENT
     Dosage: 90 MG/M2, CYCLICAL (OVER 30-60 MIN ON DAYS 1 AND 2 OF EACH CYCLE FOR EVERY 4 WEEKS FOR UP TO 6 CYCL)
     Route: 065
  2. PEGFILGRASTIM [Suspect]
     Active Substance: PEGFILGRASTIM
     Indication: PROPHYLAXIS
     Dosage: 6 MG, UNK (IN A SINGLE ADMINISTRATION ON DAY 4, FROM THE FIRST COURSE OF IMMUNO-CHEMOTHERAPY)
     Route: 058
  3. FILGRASTIM [Suspect]
     Active Substance: FILGRASTIM
     Indication: PROPHYLAXIS
     Dosage: 5 MUG/KG, QD (5 MCG/KG,1 IN 1 D)
     Route: 058
  4. RITUXIMAB [Suspect]
     Active Substance: RITUXIMAB
     Indication: NON-HODGKIN^S LYMPHOMA UNSPECIFIED HISTOLOGY INDOLENT
     Dosage: 375 MG/M2, CYCLICAL (ON DAY 1 OF EACH CYCLE FOR EVERY 4 WEEKS FOR UP TO 6 CYCLES)
     Route: 042

REACTIONS (7)
  - Stomatitis [Unknown]
  - Pneumonia [Unknown]
  - Lower respiratory tract infection [Unknown]
  - Febrile neutropenia [Unknown]
  - Pyrexia [Unknown]
  - Bacteraemia [Unknown]
  - Upper respiratory tract infection [Unknown]
